FAERS Safety Report 16198482 (Version 2)
Quarter: 2019Q2

REPORT INFORMATION
  Report Type: Spontaneous
  Country: FR (occurrence: FR)
  Receive Date: 20190415
  Receipt Date: 20190521
  Transmission Date: 20190711
  Serious: Yes (Other)
  Sender: FDA-Public Use
  Company Number: FR-AMREGENT-20190700

PATIENT
  Age: 28 Year
  Sex: Female

DRUGS (1)
  1. FERINJECT [Suspect]
     Active Substance: FERRIC CARBOXYMALTOSE
     Dosage: 1 GM, 1 TOTAL
     Route: 041
     Dates: start: 20190206, end: 20190206

REACTIONS (6)
  - Infusion related reaction [Unknown]
  - Hot flush [Unknown]
  - Pruritus [Unknown]
  - Malaise [Unknown]
  - Exposure during pregnancy [Unknown]
  - Nausea [Unknown]

NARRATIVE: CASE EVENT DATE: 20190206
